FAERS Safety Report 23427290 (Version 1)
Quarter: 2024Q1

REPORT INFORMATION
  Report Type: Spontaneous
  Country: CN (occurrence: CN)
  Receive Date: 20240122
  Receipt Date: 20240122
  Transmission Date: 20240410
  Serious: Yes (Hospitalization)
  Sender: FDA-Public Use
  Company Number: CN-SHANGHAI JUNSHI BIOSCIENCES CO., LTD.-CN2024009086

PATIENT

DRUGS (2)
  1. TORIPALIMAB [Suspect]
     Active Substance: TORIPALIMAB
     Indication: Malignant melanoma
     Dosage: 160 MG (D1)
     Route: 041
     Dates: start: 20231207, end: 20231207
  2. CISPLATIN [Suspect]
     Active Substance: CISPLATIN
     Indication: Malignant melanoma
     Dosage: 30 MG, D1-D2, QD
     Route: 041
     Dates: start: 20231207, end: 20231208

REACTIONS (2)
  - Myelosuppression [Recovering/Resolving]
  - Off label use [Unknown]

NARRATIVE: CASE EVENT DATE: 20231207
